FAERS Safety Report 26034773 (Version 1)
Quarter: 2025Q4

REPORT INFORMATION
  Report Type: Spontaneous
  Country: US (occurrence: US)
  Receive Date: 20251112
  Receipt Date: 20251112
  Transmission Date: 20260117
  Serious: Yes (Other)
  Sender: CB FLEET
  Company Number: US-PRESTIGE-202511-US-003590

PATIENT
  Sex: Male

DRUGS (1)
  1. THERATEARS EXTRA [Suspect]
     Active Substance: CARBOXYMETHYLCELLULOSE SODIUM
     Indication: Dry eye
     Dosage: BEEN USING THIS BOTTLE 1 TO 3 DROPS TWICE DAILY PER EYE PER DAY FOR ABOUT A MONTH
     Route: 047

REACTIONS (7)
  - Eye infection [Recovered/Resolved]
  - Ocular hyperaemia [Recovered/Resolved]
  - Eye discharge [Recovered/Resolved]
  - Eye pain [Recovered/Resolved]
  - Eye irritation [Recovered/Resolved]
  - Product contamination microbial [None]
  - Overdose [None]
